FAERS Safety Report 12228830 (Version 1)
Quarter: 2016Q1

REPORT INFORMATION
  Report Type: Spontaneous
  Country: US (occurrence: None)
  Receive Date: 20160331
  Receipt Date: 20160331
  Transmission Date: 20160526
  Serious: Yes (Other)
  Sender: FDA-Public Use
  Company Number: None

PATIENT
  Age: 38 Year
  Sex: Male
  Weight: 95.26 kg

DRUGS (7)
  1. COQ10 [Concomitant]
     Active Substance: UBIDECARENONE
  2. LISINOPRIL. [Concomitant]
     Active Substance: LISINOPRIL
  3. CIPROFLOXACIN TEVA PHARMACEUTICAL, USA [Suspect]
     Active Substance: CIPROFLOXACIN
     Indication: POLLAKIURIA
     Dosage: THREE TIMES A DAY
     Route: 048
     Dates: start: 20160107, end: 20160214
  4. VITAMIN D [Concomitant]
     Active Substance: CHOLECALCIFEROL
  5. MULTIVITAMIN [Concomitant]
     Active Substance: VITAMINS
  6. CIPROFLOXACIN TEVA PHARMACEUTICAL, USA [Suspect]
     Active Substance: CIPROFLOXACIN
     Indication: MICTURITION URGENCY
     Dosage: THREE TIMES A DAY
     Route: 048
     Dates: start: 20160107, end: 20160214
  7. CIPROFLOXACIN TEVA PHARMACEUTICAL, USA [Suspect]
     Active Substance: CIPROFLOXACIN
     Indication: INCONTINENCE
     Dosage: THREE TIMES A DAY
     Route: 048
     Dates: start: 20160107, end: 20160214

REACTIONS (3)
  - Limb injury [None]
  - Ligament rupture [None]
  - Arthralgia [None]

NARRATIVE: CASE EVENT DATE: 20160309
